FAERS Safety Report 17976039 (Version 4)
Quarter: 2020Q4

REPORT INFORMATION
  Report Type: Report from Study
  Country: PA (occurrence: PA)
  Receive Date: 20200702
  Receipt Date: 20201006
  Transmission Date: 20210113
  Serious: Yes (Other)
  Sender: FDA-Public Use
  Company Number: NVSC2020PA049289

PATIENT
  Age: 30 Year
  Sex: Female

DRUGS (3)
  1. COSENTYX [Suspect]
     Active Substance: SECUKINUMAB
     Dosage: 300 MG, QMO
     Route: 058
  2. COSENTYX [Suspect]
     Active Substance: SECUKINUMAB
     Dosage: 300 MG, QMO
     Route: 058
     Dates: start: 20200920
  3. COSENTYX [Suspect]
     Active Substance: SECUKINUMAB
     Indication: PSORIASIS
     Dosage: 300 MG, QMO
     Route: 058
     Dates: start: 20190920

REACTIONS (20)
  - Otorrhoea [Not Recovered/Not Resolved]
  - Oral disorder [Not Recovered/Not Resolved]
  - Tinnitus [Not Recovered/Not Resolved]
  - Nasal congestion [Not Recovered/Not Resolved]
  - Rhinorrhoea [Not Recovered/Not Resolved]
  - Weight decreased [Unknown]
  - Psoriasis [Recovered/Resolved]
  - Skin plaque [Recovered/Resolved]
  - Otitis externa [Not Recovered/Not Resolved]
  - Injection site pain [Not Recovered/Not Resolved]
  - Ear infection [Recovering/Resolving]
  - Labyrinthitis [Recovering/Resolving]
  - Weight increased [Recovered/Resolved]
  - Scab [Recovered/Resolved]
  - Nasal crusting [Not Recovered/Not Resolved]
  - Ear disorder [Not Recovered/Not Resolved]
  - Pruritus [Unknown]
  - Cough [Recovered/Resolved]
  - Nasal disorder [Not Recovered/Not Resolved]
  - Nasopharyngitis [Recovered/Resolved]

NARRATIVE: CASE EVENT DATE: 201912
